FAERS Safety Report 12131020 (Version 1)
Quarter: 2016Q1

REPORT INFORMATION
  Report Type: Spontaneous
  Country: US (occurrence: None)
  Receive Date: 20160229
  Receipt Date: 20160229
  Transmission Date: 20160526
  Serious: Yes (Other)
  Sender: FDA-Public Use
  Company Number: None

PATIENT
  Age: 39 Year
  Sex: Female
  Weight: 58.51 kg

DRUGS (5)
  1. RX D [Concomitant]
  2. SYNTHROID [Concomitant]
     Active Substance: LEVOTHYROXINE SODIUM
  3. SOTALOL. [Suspect]
     Active Substance: SOTALOL
     Indication: VENTRICULAR TACHYCARDIA
     Dosage: SOTALOL TWICE DAILY TAKEN BY MOUTH
     Route: 048
     Dates: start: 20151015, end: 20160228
  4. TYLENOL [Concomitant]
     Active Substance: ACETAMINOPHEN
  5. ALEVE [Concomitant]
     Active Substance: NAPROXEN SODIUM

REACTIONS (14)
  - Neck pain [None]
  - Hypoaesthesia [None]
  - Paraesthesia [None]
  - Vision blurred [None]
  - Dysphonia [None]
  - Pain [None]
  - Muscle twitching [None]
  - Fatigue [None]
  - Throat tightness [None]
  - Chest pain [None]
  - Chest discomfort [None]
  - Decreased activity [None]
  - Speech disorder [None]
  - Asthenia [None]
